FAERS Safety Report 7434290-8 (Version None)
Quarter: 2011Q2

REPORT INFORMATION
  Report Type: 
  Country: None (occurrence: None)
  Receive Date: 20110420
  Receipt Date: 20110420
  Transmission Date: 20111010
  Serious: Yes (Hospitalization)
  Sender: FDA-Public Use
  Company Number: None

PATIENT
  Age: 73 Year
  Sex: Male
  Weight: 101 kg

DRUGS (2)
  1. MORPHINE [Suspect]
     Indication: PAIN
     Dosage: 60 MG SA BID PO
     Route: 048
     Dates: start: 20101201, end: 20110214
  2. PREGABALIN [Suspect]
     Indication: PAIN
     Dosage: 100 MG BID PO
     Route: 048
     Dates: start: 20100729, end: 20110107

REACTIONS (9)
  - ASTHENIA [None]
  - CONFUSIONAL STATE [None]
  - AGITATION [None]
  - DYSSTASIA [None]
  - COORDINATION ABNORMAL [None]
  - PNEUMONIA [None]
  - FALL [None]
  - DYSKINESIA [None]
  - TREMOR [None]
